FAERS Safety Report 8611642-1 (Version None)
Quarter: 2012Q3

REPORT INFORMATION
  Report Type: 
  Country: None (occurrence: None)
  Receive Date: 20120822
  Receipt Date: 20120820
  Transmission Date: 20120928
  Serious: No
  Sender: FDA-Public Use
  Company Number: US-PFIZER INC-2012204281

PATIENT
  Age: 62 Year
  Sex: Male
  Weight: 51.7 kg

DRUGS (2)
  1. CELEBREX [Suspect]
     Indication: ARTHRITIS
     Dosage: 100 MG, 2X/DAY
     Route: 048
     Dates: start: 20070101, end: 20120412
  2. DYAZIDE [Concomitant]
     Dosage: UNK

REACTIONS (7)
  - HEART RATE INCREASED [None]
  - MALAISE [None]
  - FALL [None]
  - WITHDRAWAL SYNDROME [None]
  - DIZZINESS [None]
  - SWELLING FACE [None]
  - BALANCE DISORDER [None]
